FAERS Safety Report 4575431-X (Version None)
Quarter: 2005Q1

REPORT INFORMATION
  Report Type: 
  Country: None (occurrence: None)
  Receive Date: 20050131
  Receipt Date: 20050131
  Transmission Date: 20050727
  Serious: Yes (Other)
  Sender: FDA-Public Use
  Company Number: None

PATIENT
  Sex: Female
  Weight: 50.8029 kg

DRUGS (12)
  1. GEMCITABINE    100MG/ML    LILLY/BRISTOL MYERS [Suspect]
     Indication: PANCREATIC CARCINOMA
     Dosage: 1000MG/M2   DAY 1 + 15   INTRAVENOU
     Route: 042
     Dates: start: 20041025, end: 20050126
  2. CISPLATIN [Suspect]
     Indication: PANCREATIC CARCINOMA
     Dosage: SEE IMAGE
     Route: 042
     Dates: start: 20041025, end: 20050126
  3. BEVACIZUMAB    GENENTECH [Suspect]
     Indication: PANCREATIC CARCINOMA
     Dosage: 10MG/KG   DAY 1 + 15   INTRAVENOUS
     Route: 042
     Dates: start: 20041025, end: 20050126
  4. LASIX [Concomitant]
  5. MEGACE [Concomitant]
  6. M.V.I. [Concomitant]
  7. CALCIUM GLUCONATE [Concomitant]
  8. ATENOLOL [Concomitant]
  9. FISH OIL [Concomitant]
  10. COUMADIN [Concomitant]
  11. TINCTURE OF OPLIM [Concomitant]
  12. ARANESP [Concomitant]

REACTIONS (2)
  - BLOOD POTASSIUM DECREASED [None]
  - OEDEMA PERIPHERAL [None]
